FAERS Safety Report 20825730 (Version 1)
Quarter: 2022Q2

REPORT INFORMATION
  Report Type: Spontaneous
  Country: US (occurrence: None)
  Receive Date: 20220512
  Receipt Date: 20220512
  Transmission Date: 20220721
  Serious: Yes (Life-Threatening, Hospitalization)
  Sender: FDA-Public Use
  Company Number: None

PATIENT
  Age: 34 Year
  Sex: Male
  Weight: 72 kg

DRUGS (1)
  1. CEFTRIAXONE [Suspect]
     Active Substance: CEFTRIAXONE
     Indication: Pneumonia
     Dosage: FREQUENCY : DAILY;?
     Route: 042
     Dates: start: 20220511, end: 20220511

REACTIONS (6)
  - Anaphylactic reaction [None]
  - Pruritus [None]
  - Dyspnoea [None]
  - Vomiting [None]
  - Pharyngeal swelling [None]
  - Oxygen saturation decreased [None]

NARRATIVE: CASE EVENT DATE: 20220511
